FAERS Safety Report 4620134-6 (Version None)
Quarter: 2005Q1

REPORT INFORMATION
  Report Type: 
  Country: None (occurrence: None)
  Receive Date: 20050328
  Receipt Date: 20050318
  Transmission Date: 20050727
  Serious: Yes (Death)
  Sender: FDA-Public Use
  Company Number: JP-NOVOPROD-243035

PATIENT
  Age: 16 Year

DRUGS (1)
  1. NOVOSEVEN [Suspect]
     Indication: GASTROINTESTINAL HAEMORRHAGE
     Dosage: 3 DOSES
     Dates: start: 20050301, end: 20050301

REACTIONS (1)
  - DISEASE PROGRESSION [None]
